FAERS Safety Report 11752180 (Version 2)
Quarter: 2016Q1

REPORT INFORMATION
  Report Type: Spontaneous
  Country: US (occurrence: US)
  Receive Date: 20151118
  Receipt Date: 20160115
  Transmission Date: 20160525
  Serious: Yes (Other)
  Sender: FDA-Public Use
  Company Number: US-LEO PHARMA-238424

PATIENT
  Sex: Female

DRUGS (1)
  1. PICATO [Suspect]
     Active Substance: INGENOL MEBUTATE
     Indication: ACTINIC KERATOSIS
     Dates: start: 20151110, end: 20151111

REACTIONS (7)
  - Dyspnoea [Recovered/Resolved]
  - Application site pain [Recovered/Resolved]
  - Drug administered at inappropriate site [None]
  - Application site erythema [Recovered/Resolved]
  - Incorrect dose administered [Unknown]
  - Application site swelling [Recovered/Resolved]
  - Chest discomfort [Recovered/Resolved]
